FAERS Safety Report 7647401-6 (Version None)
Quarter: 2011Q3

REPORT INFORMATION
  Report Type: 
  Country: None (occurrence: None)
  Receive Date: 20110801
  Receipt Date: 20110720
  Transmission Date: 20111222
  Serious: Yes (Hospitalization)
  Sender: FDA-Public Use
  Company Number: US-ASTRAZENECA-2009UW00597

PATIENT
  Age: 59 Year
  Sex: Female
  Weight: 72.6 kg

DRUGS (13)
  1. LOVENOX [Concomitant]
  2. SEROQUEL [Suspect]
     Route: 048
     Dates: start: 20061017
  3. RISPERDAL [Concomitant]
     Dates: start: 20070712, end: 20071024
  4. ZOLOFT [Concomitant]
     Dates: start: 20061121, end: 20080221
  5. ZOLOFT [Concomitant]
     Dosage: 50 TO 100 MG
     Dates: start: 20040416, end: 20060724
  6. LORTAB [Concomitant]
     Dosage: 10/500 TID PRN
     Dates: start: 20061017
  7. BENICAR HCT [Concomitant]
     Dosage: 20/12.5 PO DAILY
     Route: 048
     Dates: start: 20061017
  8. SEROQUEL [Suspect]
     Indication: DEPRESSION
     Route: 048
     Dates: start: 20040722
  9. KLONOPIN [Concomitant]
     Route: 048
     Dates: start: 20061017
  10. NEXIUM [Concomitant]
     Dates: start: 20061017
  11. TRAZODONE HCL [Concomitant]
     Dates: start: 20030213, end: 20040925
  12. VYTORIN [Concomitant]
     Dosage: 10/41 PO DAILY
     Route: 048
     Dates: start: 20061017
  13. PHENDIMETRAZINE FUMARATE [Concomitant]
     Indication: WEIGHT CONTROL
     Dates: start: 20010101

REACTIONS (4)
  - FALL [None]
  - DIABETES MELLITUS INADEQUATE CONTROL [None]
  - HYPERGLYCAEMIC HYPEROSMOLAR NONKETOTIC SYNDROME [None]
  - VISION BLURRED [None]
